FAERS Safety Report 24823988 (Version 2)
Quarter: 2025Q3

REPORT INFORMATION
  Report Type: Report from Study
  Country: CA (occurrence: CA)
  Receive Date: 20250109
  Receipt Date: 20250810
  Transmission Date: 20251021
  Serious: Yes (Other)
  Sender: ALEXION PHARMACEUTICALS
  Company Number: CA-AstraZeneca-CH-00779169A

PATIENT
  Age: 42 Year
  Sex: Female

DRUGS (2)
  1. ANIFROLUMAB [Suspect]
     Active Substance: ANIFROLUMAB
     Indication: Autoantibody positive
     Dosage: 300 MILLIGRAM, Q4W
     Dates: start: 20240418
  2. ANIFROLUMAB [Suspect]
     Active Substance: ANIFROLUMAB
     Indication: Systemic lupus erythematosus

REACTIONS (1)
  - Pleural effusion [Recovering/Resolving]

NARRATIVE: CASE EVENT DATE: 20241213
